FAERS Safety Report 12531072 (Version 1)
Quarter: 2016Q3

REPORT INFORMATION
  Report Type: Report from Study
  Country: AR (occurrence: AR)
  Receive Date: 20160706
  Receipt Date: 20160706
  Transmission Date: 20161109
  Serious: Yes (Other)
  Sender: FDA-Public Use
  Company Number: PHHY2016AR091618

PATIENT
  Sex: Female

DRUGS (2)
  1. DIOVAN [Suspect]
     Active Substance: VALSARTAN
     Indication: PRODUCT USED FOR UNKNOWN INDICATION
     Dosage: 80 OT, UNK
     Route: 065
  2. DIOVAN D [Suspect]
     Active Substance: HYDROCHLOROTHIAZIDE\VALSARTAN
     Indication: PRODUCT USED FOR UNKNOWN INDICATION
     Dosage: 1 DF (VALSARTAN 160, HYDROCHLOROTHIAZIDE: STRENGTH AND UNITS NOT REPORTED)
     Route: 065

REACTIONS (4)
  - General physical condition abnormal [Unknown]
  - Limb discomfort [Unknown]
  - Memory impairment [Unknown]
  - Glaucoma [Unknown]
